FAERS Safety Report 8391566 (Version 3)
Quarter: 2014Q1

REPORT INFORMATION
  Report Type: Spontaneous
  Country: GB (occurrence: None)
  Receive Date: 20120123
  Receipt Date: 20140127
  Transmission Date: 20141002
  Serious: Yes (Hospitalization, Disabling)
  Sender: FDA-Public Use
  Company Number: AUR-APL-2012-00509

PATIENT
  Age: 81 Year
  Sex: Male
  Weight: 61.7 kg

DRUGS (6)
  1. GABAPENTIN [Suspect]
     Indication: PRODUCT USED FOR UNKNOWN INDICATION
     Dosage: 300MG (100 MG, 3 IN 1 D).ORAL?
     Dates: start: 20110606, end: 20110606
  2. CLARITHROMYCIN [Concomitant]
  3. DIGOXIN [Concomitant]
  4. LAXIDO [Concomitant]
  5. METFORMIN HYDROCHLORIDE [Concomitant]
  6. WARFARIN SODIUM [Concomitant]

REACTIONS (13)
  - Confusional state [None]
  - Sedation [None]
  - Cerebral infarction [None]
  - Bradycardia [None]
  - Headache [None]
  - Hypotension [None]
  - Pyrexia [None]
  - Vomiting [None]
  - Fatigue [None]
  - Amnesia [None]
  - Thinking abnormal [None]
  - Mental impairment [None]
  - Speech disorder [None]
